FAERS Safety Report 4323479-2 (Version None)
Quarter: 2004Q1

REPORT INFORMATION
  Report Type: 
  Country: None (occurrence: None)
  Receive Date: 20040325
  Receipt Date: 20030805
  Transmission Date: 20041129
  Serious: Yes (Hospitalization)
  Sender: FDA-Public Use
  Company Number: PHHO2003US10100

PATIENT
  Age: 53 Year
  Sex: Male
  Weight: 67 kg

DRUGS (5)
  1. SDZ RAD [Suspect]
     Indication: RENAL TRANSPLANT
     Dosage: 2 MG, BID
     Route: 048
     Dates: end: 20030721
  2. SDZ RAD [Suspect]
     Dosage: 2 MG, BID
     Route: 048
     Dates: start: 20030805
  3. RAD001 OR MYCOPHENOLATE MOFITIL [Suspect]
     Indication: RENAL TRANSPLANT
     Dosage: CODE NOT BROKEN
     Route: 048
     Dates: start: 19990108
  4. LIPITOR [Suspect]
     Dosage: 20 MG, QD
     Route: 048
     Dates: start: 20000504, end: 20030721
  5. DIOVAN [Suspect]
     Dosage: 80 MG, QD
     Route: 048
     Dates: start: 19990907, end: 20030721

REACTIONS (4)
  - BLOOD CREATININE INCREASED [None]
  - DRUG TOXICITY [None]
  - FLANK PAIN [None]
  - HEPATIC ENZYME INCREASED [None]
